FAERS Safety Report 24606563 (Version 1)
Quarter: 2024Q4

REPORT INFORMATION
  Report Type: Spontaneous
  Country: US (occurrence: US)
  Receive Date: 20241112
  Receipt Date: 20241112
  Transmission Date: 20250115
  Serious: No
  Sender: Kanchan Healthcare
  Company Number: US-Kanchan Healthcare INC-2164823

PATIENT
  Age: 60 Year
  Sex: Female

DRUGS (5)
  1. ETHAMBUTOL HYDROCHLORIDE [Suspect]
     Active Substance: ETHAMBUTOL HYDROCHLORIDE
     Indication: Mycobacterium avium complex infection
  2. RIFAMPIN [Suspect]
     Active Substance: RIFAMPIN
  3. MOXIFLOXACIN [Concomitant]
     Active Substance: MOXIFLOXACIN
  4. RIFABUTIN [Suspect]
     Active Substance: RIFABUTIN
     Dates: start: 20170719
  5. AZITHROMYCIN ANHYDROUS [Suspect]
     Active Substance: AZITHROMYCIN ANHYDROUS

REACTIONS (5)
  - Respiratory disorder [Recovered/Resolved]
  - Product use in unapproved indication [Unknown]
  - Disease recurrence [Unknown]
  - Drug intolerance [Unknown]
  - Cough [Unknown]

NARRATIVE: CASE EVENT DATE: 20180101
